FAERS Safety Report 17845176 (Version 2)
Quarter: 2020Q4

REPORT INFORMATION
  Report Type: Report from Study
  Country: US (occurrence: US)
  Receive Date: 20200601
  Receipt Date: 20201013
  Transmission Date: 20210113
  Serious: No
  Sender: FDA-Public Use
  Company Number: US-SHIRE-US202006457

PATIENT
  Sex: Female
  Weight: 114.29 kg

DRUGS (8)
  1. GATTEX [Suspect]
     Active Substance: TEDUGLUTIDE\WATER
     Indication: SHORT-BOWEL SYNDROME
     Dosage: 0.5700 UNK, 1X/DAY:QD
     Route: 058
     Dates: start: 20181228
  2. GATTEX [Suspect]
     Active Substance: TEDUGLUTIDE\WATER
     Indication: SHORT-BOWEL SYNDROME
     Dosage: 0.5700 UNK, 1X/DAY:QD
     Route: 058
     Dates: start: 20181228
  3. GATTEX [Suspect]
     Active Substance: TEDUGLUTIDE\WATER
     Dosage: 0.57 MILLILITER, 1X/DAY:QD
     Route: 058
  4. GATTEX [Suspect]
     Active Substance: TEDUGLUTIDE\WATER
     Dosage: 0.57 MILLILITER, 1X/DAY:QD
     Route: 058
  5. GATTEX [Suspect]
     Active Substance: TEDUGLUTIDE\WATER
     Dosage: 0.57 MILLILITER, 1X/DAY:QD
     Route: 058
  6. GATTEX [Suspect]
     Active Substance: TEDUGLUTIDE\WATER
     Indication: SHORT-BOWEL SYNDROME
     Dosage: 0.5700 UNK, 1X/DAY:QD
     Route: 058
     Dates: start: 20181228
  7. GATTEX [Suspect]
     Active Substance: TEDUGLUTIDE\WATER
     Dosage: 0.57 MILLILITER, 1X/DAY:QD
     Route: 058
  8. GATTEX [Suspect]
     Active Substance: TEDUGLUTIDE\WATER
     Indication: SHORT-BOWEL SYNDROME
     Dosage: 0.5700 UNK, 1X/DAY:QD
     Route: 058
     Dates: start: 20181228

REACTIONS (5)
  - Abdominal discomfort [Unknown]
  - Food poisoning [Recovering/Resolving]
  - Inappropriate schedule of product administration [Unknown]
  - Inability to afford medication [Recovered/Resolved]
  - Diarrhoea [Recovering/Resolving]
